FAERS Safety Report 4981004-7 (Version None)
Quarter: 2006Q2

REPORT INFORMATION
  Report Type: 
  Country: None (occurrence: None)
  Receive Date: 20060421
  Receipt Date: 20060411
  Transmission Date: 20061013
  Serious: Yes (Hospitalization)
  Sender: FDA-Public Use
  Company Number: 2006BI005340

PATIENT
  Age: 62 Year
  Sex: Female
  Weight: 45.3597 kg

DRUGS (3)
  1. AVONEX [Suspect]
     Indication: MULTIPLE SCLEROSIS
     Dosage: IM
     Route: 030
  2. ASCORBIC ACID [Concomitant]
  3. TYLENOL (CAPLET) [Concomitant]

REACTIONS (6)
  - ANKLE FRACTURE [None]
  - INSOMNIA [None]
  - JOINT SPRAIN [None]
  - JOINT SWELLING [None]
  - MOVEMENT DISORDER [None]
  - STRESS [None]
